FAERS Safety Report 21436954 (Version 1)
Quarter: 2022Q4

REPORT INFORMATION
  Report Type: Spontaneous
  Country: GB (occurrence: GB)
  Receive Date: 20221010
  Receipt Date: 20221010
  Transmission Date: 20230112
  Serious: Yes (Other)
  Sender: FDA-Public Use
  Company Number: GB-Galen Limited-AE-2022-0583

PATIENT
  Age: 77 Year
  Sex: Female

DRUGS (3)
  1. MORPHINE SULFATE [Suspect]
     Active Substance: MORPHINE SULFATE
     Indication: Analgesic therapy
     Dosage: 2 MILLIGRAM
     Route: 065
  2. POLYETHYLENE GLYCOL 3350\POTASSIUM CHLORIDE\SODIUM BICARBONATE\SODIUM [Suspect]
     Active Substance: POLYETHYLENE GLYCOL 3350\POTASSIUM CHLORIDE\SODIUM BICARBONATE\SODIUM CHLORIDE
     Indication: Product used for unknown indication
     Dosage: TWO SACHETS ON DAY 1 + ONE SACHET ON DAY 2
     Route: 065
     Dates: start: 20220713
  3. ACETAMINOPHEN [Concomitant]
     Active Substance: ACETAMINOPHEN
     Indication: Product used for unknown indication
     Dosage: UNK

REACTIONS (15)
  - Gastrointestinal motility disorder [Unknown]
  - Anal incontinence [Recovered/Resolved]
  - Proctalgia [Unknown]
  - Abdominal distension [Unknown]
  - Faeces pale [Unknown]
  - Nausea [Unknown]
  - Haemorrhoids [Unknown]
  - Abnormal faeces [Unknown]
  - Faecal volume decreased [Recovered/Resolved]
  - Gastrointestinal motility disorder [Unknown]
  - Gastrointestinal motility disorder [Unknown]
  - Diarrhoea [Unknown]
  - Skin irritation [Unknown]
  - Product use in unapproved indication [Recovered/Resolved]
  - Frequent bowel movements [Recovered/Resolved]

NARRATIVE: CASE EVENT DATE: 20220701
